FAERS Safety Report 18695779 (Version 1)
Quarter: 2021Q1

REPORT INFORMATION
  Report Type: Spontaneous
  Country: US (occurrence: US)
  Receive Date: 20210104
  Receipt Date: 20210104
  Transmission Date: 20210419
  Serious: No
  Sender: FDA-Public Use
  Company Number: None

PATIENT
  Age: 60 Year
  Sex: Female
  Weight: 83.25 kg

DRUGS (2)
  1. TYMLOS [Concomitant]
     Active Substance: ABALOPARATIDE
     Dates: start: 20200925, end: 20210104
  2. TYMLOS [Suspect]
     Active Substance: ABALOPARATIDE
     Indication: OSTEOPOROSIS
     Route: 058
     Dates: start: 20200625, end: 20210104

REACTIONS (8)
  - Therapy interrupted [None]
  - Back pain [None]
  - Dysstasia [None]
  - Bone pain [None]
  - Memory impairment [None]
  - Confusional state [None]
  - Headache [None]
  - Myalgia [None]

NARRATIVE: CASE EVENT DATE: 20210104
